FAERS Safety Report 20466767 (Version 1)
Quarter: 2022Q1

REPORT INFORMATION
  Report Type: Report from Study
  Country: RO (occurrence: RO)
  Receive Date: 20220214
  Receipt Date: 20220214
  Transmission Date: 20220423
  Serious: Yes (Other)
  Sender: FDA-Public Use
  Company Number: RO-SUN PHARMACEUTICAL INDUSTRIES LTD-2022R1-326153

PATIENT
  Age: 82 Year

DRUGS (3)
  1. BUDESONIDE\FORMOTEROL [Suspect]
     Active Substance: BUDESONIDE\FORMOTEROL
     Indication: Respiratory disorder
     Dosage: 2 DOSAGE FORM, DAILY(9/320 MICROGRAM)
  2. ALBUTEROL [Suspect]
     Active Substance: ALBUTEROL
     Indication: Respiratory disorder
     Dosage: 100 MICROGRAM(2 INHALATIONS AS NEEDED)
  3. TIOTROPIUM BROMIDE [Suspect]
     Active Substance: TIOTROPIUM BROMIDE
     Indication: Respiratory disorder
     Dosage: 2.5 MICROGRAM, DAILY

REACTIONS (1)
  - Asthma [Unknown]
